FAERS Safety Report 25703225 (Version 1)
Quarter: 2025Q3

REPORT INFORMATION
  Report Type: Spontaneous
  Country: CN (occurrence: CN)
  Receive Date: 20250820
  Receipt Date: 20250820
  Transmission Date: 20251021
  Serious: Yes (Disabling)
  Sender: ALEXION PHARMACEUTICALS
  Company Number: CN-ASTRAZENECA-202508CHN012413CN

PATIENT
  Age: 59 Year
  Sex: Female
  Weight: 70 kg

DRUGS (1)
  1. LYNPARZA [Suspect]
     Active Substance: OLAPARIB
     Indication: Neoplasm prophylaxis
     Dosage: 300 MILLIGRAM, BID
     Dates: start: 20250722, end: 20250812

REACTIONS (2)
  - Liver injury [Unknown]
  - Asthenia [Unknown]

NARRATIVE: CASE EVENT DATE: 20250813
